FAERS Safety Report 4319348-4 (Version None)
Quarter: 2004Q1

REPORT INFORMATION
  Report Type: 
  Country: None (occurrence: None)
  Receive Date: 20040319
  Receipt Date: 20040309
  Transmission Date: 20041129
  Serious: Yes (Hospitalization)
  Sender: FDA-Public Use
  Company Number: PHNR2004AU00750

PATIENT
  Sex: Male

DRUGS (1)
  1. CLOZARIL [Suspect]
     Indication: SCHIZOPHRENIA
     Dosage: 12.5 - 400 MG/DAY
     Route: 048
     Dates: start: 20031111

REACTIONS (4)
  - GROIN PAIN [None]
  - MALIGNANT NEOPLASM PROGRESSION [None]
  - TESTIS CANCER [None]
  - VASCULAR STENOSIS [None]
